FAERS Safety Report 9803482 (Version 1)
Quarter: 2014Q1

REPORT INFORMATION
  Report Type: Spontaneous
  Country: US (occurrence: US)
  Receive Date: 20140108
  Receipt Date: 20140108
  Transmission Date: 20141002
  Serious: Yes (Other)
  Sender: FDA-Public Use
  Company Number: US-SA-2014SA001939

PATIENT
  Age: 40 Year
  Sex: Female

DRUGS (1)
  1. AMBIEN [Suspect]
     Route: 065

REACTIONS (1)
  - Toxicity to various agents [Unknown]
